FAERS Safety Report 8985191 (Version 2)
Quarter: 2012Q4

REPORT INFORMATION
  Report Type: 
  Country: NZ (occurrence: NZ)
  Receive Date: 20121226
  Receipt Date: 20121227
  Transmission Date: 20130627
  Serious: Yes (Hospitalization)
  Sender: FDA-Public Use
  Company Number: PHHY2012NZ117524

PATIENT
  Age: 51 Year
  Sex: Male

DRUGS (2)
  1. CLOZARIL [Suspect]
     Dosage: UNK
     Dates: start: 19990212
  2. CLOZARIL [Suspect]
     Dosage: 400 mg, UNK
     Route: 048

REACTIONS (20)
  - Activated partial thromboplastin time prolonged [Unknown]
  - Blood sodium decreased [Recovering/Resolving]
  - Glomerular filtration rate decreased [Unknown]
  - Mean cell volume decreased [Unknown]
  - Mean platelet volume increased [Unknown]
  - Haematocrit decreased [Unknown]
  - C-reactive protein increased [Unknown]
  - Protein total decreased [Unknown]
  - Blood albumin decreased [Recovering/Resolving]
  - Blood osmolarity decreased [Unknown]
  - Thyroxine free increased [Unknown]
  - Blood thyroid stimulating hormone increased [Unknown]
  - Blood creatinine increased [Unknown]
  - Monocyte count increased [Unknown]
  - Neutrophil count increased [Recovering/Resolving]
  - Blood creatine phosphokinase increased [Unknown]
  - White blood cell count increased [Recovering/Resolving]
  - Antipsychotic drug level increased [Unknown]
  - Antipsychotic drug level decreased [Recovered/Resolved]
  - Alanine aminotransferase increased [Recovering/Resolving]
